FAERS Safety Report 6029336-8 (Version None)
Quarter: 2009Q1

REPORT INFORMATION
  Report Type: 
  Country: None (occurrence: None)
  Receive Date: 20090102
  Receipt Date: 20081128
  Transmission Date: 20090719
  Serious: Yes (Hospitalization)
  Sender: FDA-Public Use
  Company Number: NMILLER11282008

PATIENT
  Age: 29 Year
  Sex: Female

DRUGS (1)
  1. CLEARSKIN PROFESSIONAL ACNE TREATMENT SYSTEM [Suspect]

REACTIONS (3)
  - ERYTHEMA [None]
  - RASH [None]
  - SKIN IRRITATION [None]
